FAERS Safety Report 5537015-6 (Version None)
Quarter: 2007Q4

REPORT INFORMATION
  Report Type: 
  Country: None (occurrence: None)
  Receive Date: 20071207
  Receipt Date: 20060201
  Transmission Date: 20080405
  Serious: Yes (Other)
  Sender: FDA-Public Use
  Company Number: FR-JNJFOC-20071004647

PATIENT
  Age: 45 Year
  Sex: Male
  Weight: 100 kg

DRUGS (6)
  1. HALOPERIDOL [Suspect]
     Indication: BIPOLAR II DISORDER
     Route: 048
  2. ACE INHIBITORS [Concomitant]
     Indication: HYPERTENSION
     Route: 065
  3. DIGOXIN [Concomitant]
     Indication: ARRHYTHMIA
     Route: 065
  4. ANTICOAGULANT [Concomitant]
     Indication: ARRHYTHMIA
     Route: 065
  5. ORAL HYPOGLYCAEMICS [Concomitant]
     Indication: DIABETES MELLITUS
     Route: 065
  6. LIPID LOWERING THERAPY [Concomitant]
     Indication: HYPERLIPIDAEMIA
     Route: 065

REACTIONS (1)
  - WEIGHT INCREASED [None]
